FAERS Safety Report 4831495-7 (Version None)
Quarter: 2005Q4

REPORT INFORMATION
  Report Type: 
  Country: None (occurrence: None)
  Receive Date: 20051116
  Receipt Date: 20051101
  Transmission Date: 20060501
  Serious: Yes (Other)
  Sender: FDA-Public Use
  Company Number: 200511IM000695

PATIENT
  Age: 43 Year
  Sex: Male

DRUGS (3)
  1. INFERGEN [Suspect]
     Indication: HEPATITIS C
     Dosage: 15 MG, QD, SUBCUTANEOUS
     Route: 058
     Dates: start: 20050716, end: 20051030
  2. RIBAVIRIN [Concomitant]
  3. VERAPAMIL [Concomitant]

REACTIONS (1)
  - CONVULSION [None]
